FAERS Safety Report 25832054 (Version 1)
Quarter: 2025Q3

REPORT INFORMATION
  Report Type: Spontaneous
  Country: US (occurrence: None)
  Receive Date: 20250921
  Receipt Date: 20250921
  Transmission Date: 20251020
  Serious: Yes (unspecified)
  Sender: FDA-CTU
  Company Number: None

PATIENT
  Age: 63 Year
  Sex: Male
  Weight: 90 kg

DRUGS (3)
  1. RECLAST [Suspect]
     Active Substance: ZOLEDRONIC ACID
     Indication: Osteoporosis
     Dates: start: 20250416, end: 20250416
  2. ACETAMINOPHEN [Suspect]
     Active Substance: ACETAMINOPHEN
  3. PREDNISONE [Concomitant]
     Active Substance: PREDNISONE

REACTIONS (11)
  - Infusion related reaction [None]
  - Platelet count decreased [None]
  - Arthralgia [None]
  - Pain [None]
  - Urinary tract disorder [None]
  - Balance disorder [None]
  - Visual impairment [None]
  - Hyperhidrosis [None]
  - Constipation [None]
  - Diarrhoea [None]
  - Systemic inflammatory response syndrome [None]

NARRATIVE: CASE EVENT DATE: 20250416
